FAERS Safety Report 5182931-0 (Version None)
Quarter: 2006Q4

REPORT INFORMATION
  Report Type: 
  Country: None (occurrence: None)
  Receive Date: 20061212
  Receipt Date: 20061204
  Transmission Date: 20070319
  Serious: Yes (Hospitalization)
  Sender: FDA-Public Use
  Company Number: 2006137209

PATIENT
  Age: 51 Year
  Sex: Male
  Weight: 86.1834 kg

DRUGS (4)
  1. BEXTRA [Suspect]
     Indication: SKELETAL INJURY
     Dosage: 40 MG (20 MG, 2 IN 1 D)
     Dates: start: 20020901
  2. ASPIRIN [Concomitant]
  3. LEXAPRO [Concomitant]
  4. VERAPAMIL [Concomitant]

REACTIONS (7)
  - DUODENAL ULCER [None]
  - GASTRIC ULCER [None]
  - GASTROINTESTINAL CANDIDIASIS [None]
  - GASTROINTESTINAL NECROSIS [None]
  - MIGRAINE [None]
  - OESOPHAGITIS [None]
  - SMALL INTESTINE ULCER [None]
